FAERS Safety Report 12093018 (Version 1)
Quarter: 2016Q1

REPORT INFORMATION
  Report Type: Spontaneous
  Country: US (occurrence: None)
  Receive Date: 20160218
  Receipt Date: 20160218
  Transmission Date: 20160526
  Serious: No
  Sender: FDA-Public Use
  Company Number: None

PATIENT
  Age: 85 Year
  Sex: Female
  Weight: 71.67 kg

DRUGS (9)
  1. METOPROLOL TART [Concomitant]
     Active Substance: METOPROLOL TARTRATE
  2. ASPRIN [Concomitant]
     Active Substance: ASPIRIN
  3. CLOPIDOGREL TABLETS USP 75 MG TEVA PHARMACEUTICALS IND LTD JERUSALEM 9777402 ISRAEL [Suspect]
     Active Substance: CLOPIDOGREL BISULFATE
     Indication: THROMBOSIS
     Route: 048
     Dates: start: 20150214, end: 20160205
  4. MEGA RED [Concomitant]
  5. ZEATANTHIN [Concomitant]
  6. VITAMINS FOR EYES [Concomitant]
  7. LUTEIN [Concomitant]
     Active Substance: LUTEIN
  8. LISINOPRIL. [Concomitant]
     Active Substance: LISINOPRIL
  9. VITAMIN D3 [Concomitant]
     Active Substance: CHOLECALCIFEROL

REACTIONS (5)
  - Asthenia [None]
  - Blood pressure increased [None]
  - Muscular weakness [None]
  - Lethargy [None]
  - Headache [None]

NARRATIVE: CASE EVENT DATE: 201502
